FAERS Safety Report 8207586-X (Version None)
Quarter: 2012Q1

REPORT INFORMATION
  Report Type: 
  Country: None (occurrence: None)
  Receive Date: 20120314
  Receipt Date: 20120306
  Transmission Date: 20120608
  Serious: No
  Sender: FDA-Public Use
  Company Number: US-PFIZER INC-2012045825

PATIENT
  Sex: Female

DRUGS (2)
  1. NORGESTREL AND ETHINYL ESTRADIOL [Suspect]
     Dosage: UNK
     Dates: start: 20111101
  2. NORGESTREL AND ETHINYL ESTRADIOL [Suspect]
     Dosage: UNK
     Dates: end: 20120101

REACTIONS (3)
  - DRUG INEFFECTIVE [None]
  - UNINTENDED PREGNANCY [None]
  - PRODUCT QUALITY ISSUE [None]
